FAERS Safety Report 16769972 (Version 3)
Quarter: 2021Q1

REPORT INFORMATION
  Report Type: Report from Study
  Country: US (occurrence: US)
  Receive Date: 20190904
  Receipt Date: 20210209
  Transmission Date: 20210419
  Serious: Yes (Hospitalization)
  Sender: FDA-Public Use
  Company Number: US-ROCHE-2397621

PATIENT
  Age: 72 Year
  Sex: Female
  Weight: 57.8 kg

DRUGS (20)
  1. VITAMIN D [COLECALCIFEROL] [Concomitant]
     Active Substance: CHOLECALCIFEROL
     Route: 048
     Dates: start: 20141013
  2. METHOTREXATE. [Concomitant]
     Active Substance: METHOTREXATE
     Indication: LUMBAR PUNCTURE
     Route: 037
     Dates: start: 20190814, end: 20190814
  3. ACETAMINOPHEN. [Concomitant]
     Active Substance: ACETAMINOPHEN
     Route: 048
  4. OXYCODONE [Concomitant]
     Active Substance: OXYCODONE
     Route: 048
     Dates: start: 20190412
  5. AMLODIPINE [Concomitant]
     Active Substance: AMLODIPINE BESYLATE
     Indication: HYPERTENSION
     Route: 048
     Dates: start: 20180927
  6. DOCUSATE;SENNA [Concomitant]
     Active Substance: DOCUSATE\SENNOSIDES
     Route: 048
     Dates: start: 20190412
  7. PREDNISONE. [Suspect]
     Active Substance: PREDNISONE
     Indication: DIFFUSE LARGE B-CELL LYMPHOMA
     Dosage: FOR 6 CYCLES?DATE OF MOST RECENT DOSE OF PREDNISONE 100 MG PRIOR TO SAE BECAME SERIOUS: 20/AUG/2019
     Route: 048
     Dates: start: 20190501
  8. FERROUS SULFATE. [Concomitant]
     Active Substance: FERROUS SULFATE
     Indication: MALABSORPTION
     Route: 048
     Dates: start: 20180927
  9. CELEBREX [Concomitant]
     Active Substance: CELECOXIB
     Indication: OSTEOARTHRITIS
     Route: 048
     Dates: start: 20140430
  10. DOXORUBICIN [Suspect]
     Active Substance: DOXORUBICIN
     Indication: DIFFUSE LARGE B-CELL LYMPHOMA
     Dosage: FOR 6 CYCLES?DATE OF MOST RECENT DOSE OF DOXORUBICIN OF 79 MG PRIOR TO SAE ONSET: 16/AUG/2019
     Route: 042
     Dates: start: 20190501
  11. GLYCERIN;POLYSORBATE 80 [Concomitant]
     Indication: DRY EYE
     Route: 047
  12. RITUXIMAB. [Suspect]
     Active Substance: RITUXIMAB
     Indication: DIFFUSE LARGE B-CELL LYMPHOMA
     Dosage: FOR 8 CYCLES?DATE OF MOST RECENT DOSE OF RITUXIMAB 589 MG PRIOR TO SAE ONSET: 16/AUG/2019
     Route: 042
     Dates: start: 20190501
  13. ELAVIL [Concomitant]
     Active Substance: AMITRIPTYLINE HYDROCHLORIDE
     Indication: INSOMNIA
     Route: 048
  14. PACKED RED BLOOD CELL [Concomitant]
     Active Substance: HUMAN RED BLOOD CELL
     Dosage: DOSE: 1 UNIT
     Route: 042
     Dates: start: 20190826, end: 20190826
  15. CYCLOPHOSPHAMIDE. [Suspect]
     Active Substance: CYCLOPHOSPHAMIDE
     Indication: DIFFUSE LARGE B-CELL LYMPHOMA
     Dosage: FOR 6 CYCLES?DATE OF MOST RECENT DOSE OF CYCLOPHOSPHAMIDE 1178 MG PRIOR TO SAE ONSET: 16/AUG/2019
     Route: 042
     Dates: start: 20190501
  16. AMOXICILLIN. [Concomitant]
     Active Substance: AMOXICILLIN
     Route: 048
  17. POLYETHYLENE GLYCOL [Concomitant]
     Active Substance: POLYETHYLENE GLYCOLS
     Route: 048
  18. CYCLOSPORINE. [Concomitant]
     Active Substance: CYCLOSPORINE
     Indication: DRY EYE
     Route: 047
     Dates: start: 20141013
  19. POLATUZUMAB VEDOTIN. [Suspect]
     Active Substance: POLATUZUMAB VEDOTIN
     Indication: DIFFUSE LARGE B-CELL LYMPHOMA
     Dosage: FOR 6 CYCLES?DATE OF MOST RECENT DOSE OF BLINDED POLATUZUMAB VEDOTIN PRIOR TO SAE ONSET: 16/AUG/2019
     Route: 042
     Dates: start: 20190501
  20. PLACEBO [Suspect]
     Active Substance: UNSPECIFIED INGREDIENT
     Indication: DIFFUSE LARGE B-CELL LYMPHOMA
     Dosage: FOR 6 CYCLES?DATE OF MOST RECENT DOSE OF BLINDED VINCRISTINE PRIOR TO SAE ONSET: 16/AUG/2019
     Route: 042
     Dates: start: 20190501

REACTIONS (1)
  - Mucosal inflammation [Recovered/Resolved]

NARRATIVE: CASE EVENT DATE: 20190816
